FAERS Safety Report 7745211-2 (Version None)
Quarter: 2011Q3

REPORT INFORMATION
  Report Type: 
  Country: None (occurrence: None)
  Receive Date: 20110907
  Receipt Date: 20110823
  Transmission Date: 20111222
  Serious: Yes (Other)
  Sender: FDA-Public Use
  Company Number: DSJ-2011-18461

PATIENT
  Age: 71 Year
  Sex: Male

DRUGS (5)
  1. PROPATYL NITRATE (PROPATYLNITRATE) (PROPATYLNITRATE) [Concomitant]
  2. QUINIDINE (QUINIDINE) (QUINDINE) [Concomitant]
  3. ACETYLSALICYLIC ACID (ACETYLSLAICYLIC ACID) (ACETYLSALICYLIC ACID) [Concomitant]
  4. BENICAR [Suspect]
     Indication: HYPERTENSION
     Dosage: 20 / 5 MG (1 IN 1 D), PER ORAL; 40 / 10 MG (2 IN 1 D), PER ORAL
     Route: 048
     Dates: start: 20110707
  5. BENICAR [Suspect]
     Indication: HYPERTENSION
     Dosage: 20 / 5 MG (1 IN 1 D), PER ORAL; 40 / 10 MG (2 IN 1 D), PER ORAL
     Route: 048
     Dates: start: 20090101, end: 20110703

REACTIONS (2)
  - DRUG INEFFECTIVE [None]
  - CEREBROVASCULAR ACCIDENT [None]
